FAERS Safety Report 6036110-5 (Version None)
Quarter: 2009Q1

REPORT INFORMATION
  Report Type: 
  Country: None (occurrence: None)
  Receive Date: 20090113
  Receipt Date: 20090107
  Transmission Date: 20090719
  Serious: Yes (Other)
  Sender: FDA-Public Use
  Company Number: JP-TEVA-181612ISR

PATIENT
  Age: 14 Year
  Sex: Female

DRUGS (5)
  1. CISPLATIN [Suspect]
     Indication: BONE SARCOMA
  2. DOXORUBICIN HYDROCHLORIDE [Suspect]
     Indication: BONE SARCOMA
  3. METHOTREXATE [Suspect]
     Indication: BONE SARCOMA
  4. CYCLOPHOSPHAMIDE [Suspect]
     Indication: BONE SARCOMA
  5. PEPLOMYCIN [Suspect]
     Indication: BONE SARCOMA

REACTIONS (1)
  - RHABDOMYOSARCOMA [None]
